FAERS Safety Report 6869235-2 (Version None)
Quarter: 2010Q3

REPORT INFORMATION
  Report Type: 
  Country: None (occurrence: None)
  Receive Date: 20100722
  Receipt Date: 20080717
  Transmission Date: 20110219
  Serious: No
  Sender: FDA-Public Use
  Company Number: US-PFIZER INC-2008062048

PATIENT
  Sex: Female
  Weight: 69.5 kg

DRUGS (5)
  1. CHANTIX [Suspect]
     Indication: EX-TOBACCO USER
     Dates: start: 20080709
  2. NICOTINE [Suspect]
     Indication: EX-TOBACCO USER
     Dates: start: 20080701
  3. GABAPENTIN [Concomitant]
  4. AMITRIPTYLINE HYDROCHLORIDE [Concomitant]
  5. PROZAC [Concomitant]

REACTIONS (1)
  - RASH [None]
